FAERS Safety Report 9397527 (Version 1)
Quarter: 2013Q3

REPORT INFORMATION
  Report Type: Report from Study
  Country: CA (occurrence: CA)
  Receive Date: 20130712
  Receipt Date: 20130712
  Transmission Date: 20140515
  Serious: Yes (Other)
  Sender: FDA-Public Use
  Company Number: CA-JNJFOC-20130706828

PATIENT
  Sex: Female
  Weight: 137.8 kg

DRUGS (6)
  1. REMICADE [Suspect]
     Indication: COLITIS ULCERATIVE
     Route: 042
     Dates: start: 20121024
  2. PAXIL [Concomitant]
     Route: 065
  3. MELOXICAM [Concomitant]
     Route: 065
  4. WELLBUTRIN [Concomitant]
     Route: 065
  5. IRON [Concomitant]
     Route: 065
  6. VITAMIN B12 [Concomitant]
     Route: 065

REACTIONS (1)
  - Carpal tunnel syndrome [Recovering/Resolving]
